FAERS Safety Report 9989364 (Version 1)
Quarter: 2014Q1

REPORT INFORMATION
  Report Type: Spontaneous
  Country: TR (occurrence: TR)
  Receive Date: 20140310
  Receipt Date: 20140310
  Transmission Date: 20141002
  Serious: Yes (Hospitalization)
  Sender: FDA-Public Use
  Company Number: TR-NOVOPROD-402135

PATIENT
  Sex: Female
  Weight: 3.6 kg

DRUGS (9)
  1. LEVEMIR FLEXPEN [Suspect]
     Indication: TYPE 2 DIABETES MELLITUS
     Dosage: 16 U, QD
     Route: 064
     Dates: start: 20130601
  2. LEVEMIR FLEXPEN [Suspect]
     Indication: TYPE 2 DIABETES MELLITUS
     Dosage: 16 U, QD
     Route: 064
     Dates: start: 20130601
  3. LEVEMIR FLEXPEN [Suspect]
     Dosage: 30 U, QD
     Route: 063
  4. LEVEMIR FLEXPEN [Suspect]
     Dosage: 30 U, QD
     Route: 063
  5. NOVORAPID FLEXPEN [Suspect]
     Indication: TYPE 2 DIABETES MELLITUS
     Dosage: 24 U, QD
     Route: 064
     Dates: start: 20130601
  6. NOVORAPID FLEXPEN [Suspect]
     Dosage: 56 U, QD
     Route: 063
  7. ECOPIRIN [Concomitant]
     Dosage: UNK (1*1)
     Route: 064
     Dates: start: 201305
  8. PREMESISRX [Concomitant]
     Dosage: UNK (1*1)
     Route: 064
     Dates: start: 201305
  9. FOLBIOL [Concomitant]
     Dosage: UNK (1*1)
     Route: 064
     Dates: start: 201305

REACTIONS (4)
  - Respiratory disorder neonatal [Recovered/Resolved]
  - Jaundice neonatal [Recovered/Resolved]
  - Foetal exposure during pregnancy [Recovered/Resolved]
  - Exposure during breast feeding [Unknown]
